FAERS Safety Report 6207841-9 (Version None)
Quarter: 2009Q2

REPORT INFORMATION
  Report Type: 
  Country: None (occurrence: None)
  Receive Date: 20090522
  Receipt Date: 20090515
  Transmission Date: 20091009
  Serious: Yes (Death)
  Sender: FDA-Public Use
  Company Number: GXKR2009DE05894

PATIENT
  Age: 67 Year
  Sex: Female

DRUGS (12)
  1. DOXORUBICIN HCL [Suspect]
  2. VINCRISTINE [Suspect]
  3. PREDNISOLONE [Suspect]
  4. CYTARABINE [Suspect]
  5. CISPLATIN [Suspect]
  6. DEXAMETHASONE [Suspect]
  7. METHOTREXATE [Suspect]
  8. ETOPOSIDE [Suspect]
  9. RITUXIMAB (RITUXIMAB) [Suspect]
  10. CYCLOPHOSPHAMIDE [Suspect]
  11. CARMUSTINE [Suspect]
  12. MELPHALAN (MELPHALAN) [Suspect]

REACTIONS (17)
  - ANAEMIA [None]
  - BLOOD IRON DECREASED [None]
  - CLOSTRIDIAL INFECTION [None]
  - CYANOSIS [None]
  - DIARRHOEA [None]
  - ERYTHEMA [None]
  - GAS GANGRENE [None]
  - JOINT SWELLING [None]
  - LEG AMPUTATION [None]
  - LEUKOPENIA [None]
  - MUSCLE NECROSIS [None]
  - PAIN IN EXTREMITY [None]
  - PERIPHERAL ISCHAEMIA [None]
  - PERIPHERAL VASCULAR DISORDER [None]
  - PERONEAL NERVE PALSY [None]
  - PSEUDOMEMBRANOUS COLITIS [None]
  - SEPTIC SHOCK [None]
